FAERS Safety Report 9621040 (Version 4)
Quarter: 2013Q4

REPORT INFORMATION
  Report Type: Spontaneous
  Country: JP (occurrence: JP)
  Receive Date: 20131015
  Receipt Date: 20131230
  Transmission Date: 20140711
  Serious: Yes (Other)
  Sender: FDA-Public Use
  Company Number: PHHY2013JP114620

PATIENT
  Age: 76 Year
  Sex: Male
  Weight: 75 kg

DRUGS (2)
  1. ZOMETA [Suspect]
     Indication: METASTASES TO BONE
     Dosage: 4 MG, UNK
     Route: 041
     Dates: start: 20100812, end: 20121011
  2. ZOMETA [Suspect]
     Dosage: 4 MG, UNK
     Dates: start: 20130110

REACTIONS (19)
  - Osteonecrosis of jaw [Not Recovered/Not Resolved]
  - Dental caries [Unknown]
  - Fistula [Unknown]
  - Purulent discharge [Not Recovered/Not Resolved]
  - Dental fistula [Not Recovered/Not Resolved]
  - Erythema [Unknown]
  - Swelling [Unknown]
  - Gingivitis [Unknown]
  - Exposed bone in jaw [Unknown]
  - Osteomyelitis [Unknown]
  - Glycosylated haemoglobin increased [Unknown]
  - Blood alkaline phosphatase increased [Unknown]
  - Neutrophil count increased [Unknown]
  - Haemoglobin decreased [Unknown]
  - Haematocrit decreased [Unknown]
  - Platelet count decreased [Unknown]
  - Eosinophil count decreased [Unknown]
  - White blood cell count decreased [Unknown]
  - Red blood cell count decreased [Unknown]
